FAERS Safety Report 22028243 (Version 1)
Quarter: 2023Q1

REPORT INFORMATION
  Report Type: Other
  Country: US (occurrence: None)
  Receive Date: 20230223
  Receipt Date: 20230223
  Transmission Date: 20230418
  Serious: Yes (Death)
  Sender: FDA-Public Use
  Company Number: US-ROCHE-3290934

PATIENT
  Age: 73 Year
  Sex: Female

DRUGS (12)
  1. PULMOZYME [Suspect]
     Active Substance: DORNASE ALFA
     Indication: Bronchiectasis
     Dosage: NEBULIZE THE CONTENTS OF 1 VIAL TWICE A DAY
     Route: 055
  2. PULMOZYME [Suspect]
     Active Substance: DORNASE ALFA
     Dosage: NEBULIZE THE CONTENTS OF 1 VIAL TWICE A DAY
     Route: 055
  3. ALBUTEROL SULFATE [Concomitant]
     Active Substance: ALBUTEROL SULFATE
  4. CEFDINIR [Concomitant]
     Active Substance: CEFDINIR
  5. DULOXETINE [Concomitant]
     Active Substance: DULOXETINE
  6. HYDROCODONE [Concomitant]
     Active Substance: HYDROCODONE
  7. IMITREX [Concomitant]
     Active Substance: SUMATRIPTAN SUCCINATE
  8. LISINOPRIL [Concomitant]
     Active Substance: LISINOPRIL
  9. TRAMADOL [Concomitant]
     Active Substance: TRAMADOL
  10. TRELEGY ELLIPTA [Concomitant]
     Active Substance: FLUTICASONE FUROATE\UMECLIDINIUM BROMIDE\VILANTEROL TRIFENATATE
  11. VENTOLIN [Concomitant]
     Active Substance: ALBUTEROL SULFATE
  12. ZOLPIDEM [Concomitant]
     Active Substance: ZOLPIDEM TARTRATE

REACTIONS (2)
  - Death [Fatal]
  - Off label use [Unknown]
